FAERS Safety Report 13619207 (Version 1)
Quarter: 2017Q2

REPORT INFORMATION
  Report Type: Spontaneous
  Country: US (occurrence: US)
  Receive Date: 20170606
  Receipt Date: 20170606
  Transmission Date: 20170830
  Serious: No
  Sender: FDA-Public Use
  Company Number: US-AMGEN-USASP2016156951

PATIENT
  Age: 62 Year
  Sex: Male
  Weight: 117.91 kg

DRUGS (5)
  1. IRON [Concomitant]
     Active Substance: IRON
     Indication: IRON DEFICIENCY
     Dosage: 324 MG, BID (TWICE DAILY)
     Route: 048
     Dates: start: 20160713
  2. COREG [Concomitant]
     Active Substance: CARVEDILOL
     Indication: CARDIAC DISORDER
     Dosage: 3.125 MG, BID (TWICE DAILY)
     Route: 048
     Dates: start: 20160711
  3. CALCIUM ACETATE. [Concomitant]
     Active Substance: CALCIUM ACETATE
     Indication: CALCIUM DEFICIENCY
     Dosage: 667 MG, TID (3 TIMES DAILY)
     Route: 048
     Dates: start: 20160927
  4. COUMADIN [Concomitant]
     Active Substance: WARFARIN SODIUM
     Indication: CARDIAC DISORDER
     Dosage: 2.5 MG, QD (DAILY)
     Route: 048
     Dates: start: 20161024
  5. PROCRIT [Suspect]
     Active Substance: ERYTHROPOIETIN
     Indication: ANAEMIA
     Dosage: 10000 UNIT, QWK (WEEKLY)
     Route: 065
     Dates: start: 20161004

REACTIONS (2)
  - Drug dose omission [Not Recovered/Not Resolved]
  - Incorrect product storage [Unknown]

NARRATIVE: CASE EVENT DATE: 2016
